FAERS Safety Report 8757307 (Version 1)
Quarter: 2012Q4

REPORT INFORMATION
  Report Type: 
  Country: US (occurrence: US)
  Receive Date: 20120828
  Receipt Date: 20120828
  Transmission Date: 20130627
  Serious: No
  Sender: FDA-Public Use
  Company Number: US-B.I. PHARMACEUTICALS,INC./RIDGEFIELD-2011-BP-15390BP

PATIENT
  Age: 90 Year
  Sex: Male

DRUGS (3)
  1. PRADAXA [Suspect]
     Indication: ATRIAL FIBRILLATION
     Dosage: 300 mg
     Route: 048
     Dates: start: 201101, end: 2011
  2. PRADAXA [Suspect]
     Dosage: 225 mg
     Route: 048
     Dates: start: 20110421, end: 20120816
  3. MEDICATION NOT FURTHER SPECIFIED [Concomitant]

REACTIONS (8)
  - Haemorrhage [Recovered/Resolved]
  - Melaena [Recovered/Resolved]
  - Anaemia [Not Recovered/Not Resolved]
  - Contusion [Not Recovered/Not Resolved]
  - Rash macular [Not Recovered/Not Resolved]
  - Rash macular [Not Recovered/Not Resolved]
  - Capillary fragility [Not Recovered/Not Resolved]
  - Erythema [Not Recovered/Not Resolved]
